FAERS Safety Report 9519194 (Version 1)
Quarter: 2013Q3

REPORT INFORMATION
  Report Type: Spontaneous
  Country: US (occurrence: US)
  Receive Date: 20130912
  Receipt Date: 20130912
  Transmission Date: 20140515
  Serious: Yes (Hospitalization, Other)
  Sender: FDA-Public Use
  Company Number: US-TEVA-431879USA

PATIENT
  Age: 26 Year
  Sex: Female

DRUGS (2)
  1. SPRINTEC [Suspect]
     Indication: CONTRACEPTION
     Route: 048
     Dates: end: 20130824
  2. LEVOTHYROXINE [Concomitant]
     Indication: THYROID DISORDER
     Dosage: 75 MICROGRAM DAILY;
     Route: 048

REACTIONS (2)
  - Cerebral venous thrombosis [Recovering/Resolving]
  - Convulsion [Unknown]
